FAERS Safety Report 17406043 (Version 1)
Quarter: 2020Q1

REPORT INFORMATION
  Report Type: Report from Study
  Country: CO (occurrence: CO)
  Receive Date: 20200212
  Receipt Date: 20200212
  Transmission Date: 20200409
  Serious: Yes (Hospitalization)
  Sender: FDA-Public Use
  Company Number: CO-ROCHE-2472410

PATIENT
  Sex: Male

DRUGS (2)
  1. VALIXA [Suspect]
     Active Substance: VALGANCICLOVIR
     Indication: TRANSPLANT
     Dosage: TWO TABLETS A DAY
     Route: 065
  2. CELLCEPT [Suspect]
     Active Substance: MYCOPHENOLATE MOFETIL\MYCOPHENOLATE MOFETIL HYDROCHLORIDE
     Indication: TRANSPLANT
     Route: 065

REACTIONS (9)
  - Urinary sediment present [Unknown]
  - Urine output decreased [Unknown]
  - Renal disorder [Recovering/Resolving]
  - Bacterial infection [Unknown]
  - Influenza [Unknown]
  - Pain [Unknown]
  - Pyrexia [Unknown]
  - Red blood cell count decreased [Unknown]
  - Asthenia [Unknown]
